FAERS Safety Report 10404168 (Version 1)
Quarter: 2014Q1

REPORT INFORMATION
  Report Type: Spontaneous
  Country: US (occurrence: None)
  Receive Date: 20131224
  Receipt Date: 20131224
  Transmission Date: 20141002
  Serious: Yes (Hospitalization)
  Sender: FDA-Public Use
  Company Number: PHEH2012US000730

PATIENT
  Age: 16 Year
  Sex: Female
  Weight: 170 kg

DRUGS (1)
  1. EXJADE (*CGP 72670*) [Suspect]
     Indication: IRON OVERLOAD
     Route: 048
     Dates: start: 20081014, end: 201212

REACTIONS (1)
  - Diarrhoea [None]
